FAERS Safety Report 10224965 (Version 3)
Quarter: 2014Q3

REPORT INFORMATION
  Report Type: Report from Study
  Country: US (occurrence: US)
  Receive Date: 20140609
  Receipt Date: 20140701
  Transmission Date: 20150326
  Serious: Yes (Hospitalization, Other)
  Sender: FDA-Public Use
  Company Number: US-MYLANLABS-2014S1012616

PATIENT
  Age: 56 Year
  Sex: Male
  Weight: 58.06 kg

DRUGS (14)
  1. CLOZAPINE TABLETS [Suspect]
     Active Substance: CLOZAPINE
     Indication: PSYCHOTIC DISORDER
     Route: 048
     Dates: start: 20140506
  2. CLOZAPINE TABLETS [Suspect]
     Active Substance: CLOZAPINE
     Indication: PSYCHOTIC DISORDER
  3. VANCOMYCIN [Concomitant]
     Active Substance: VANCOMYCIN
     Dosage: 7 DAYS OF THERAPY
     Route: 042
  4. BUSPIRONE [Concomitant]
     Active Substance: BUSPIRONE HYDROCHLORIDE
  5. ZOSYN [Concomitant]
     Active Substance: PIPERACILLIN SODIUM\TAZOBACTAM SODIUM
     Dosage: 7 DAYS OF THERAPY
     Route: 042
  6. CLOZAPINE TABLETS [Suspect]
     Active Substance: CLOZAPINE
     Indication: SCHIZOPHRENIA
     Route: 048
     Dates: start: 20140506
  7. CLOZAPINE TABLETS [Suspect]
     Active Substance: CLOZAPINE
     Indication: PSYCHOTIC DISORDER
     Route: 048
     Dates: end: 20140506
  8. CLOZAPINE TABLETS [Suspect]
     Active Substance: CLOZAPINE
     Indication: SCHIZOPHRENIA
     Route: 048
     Dates: end: 20140506
  9. DEPAKOTE [Concomitant]
     Active Substance: DIVALPROEX SODIUM
     Route: 048
  10. FLUPHENAZINE [Concomitant]
     Active Substance: FLUPHENAZINE
     Route: 048
  11. MEMANTINE [Concomitant]
     Active Substance: MEMANTINE
  12. QUETIAPINE [Concomitant]
     Active Substance: QUETIAPINE
     Dosage: 50MG EVERY MORNING, AND 200MG AT BEDTIME
  13. LYRICA [Concomitant]
     Active Substance: PREGABALIN
     Route: 048
  14. COGENTIN [Concomitant]
     Active Substance: BENZTROPINE MESYLATE
     Route: 048

REACTIONS (3)
  - Granulocytopenia [Recovered/Resolved]
  - Confusional state [Recovered/Resolved]
  - Mental status changes [Recovered/Resolved]

NARRATIVE: CASE EVENT DATE: 20140506
